FAERS Safety Report 23232144 (Version 1)
Quarter: 2023Q4

REPORT INFORMATION
  Report Type: Spontaneous
  Country: US (occurrence: US)
  Receive Date: 20231127
  Receipt Date: 20231127
  Transmission Date: 20240110
  Serious: No
  Sender: FDA-Public Use
  Company Number: US-BRISTOL-MYERS SQUIBB COMPANY-2023-170078

PATIENT
  Age: 58 Year
  Sex: Female
  Weight: 70.31 kg

DRUGS (2)
  1. ZEPOSIA [Suspect]
     Active Substance: OZANIMOD HYDROCHLORIDE
     Indication: Multiple sclerosis
     Route: 048
     Dates: start: 20231108
  2. VITAMINS NOS [Concomitant]
     Active Substance: VITAMINS
     Indication: Product used for unknown indication

REACTIONS (5)
  - Gait disturbance [Not Recovered/Not Resolved]
  - Head discomfort [Unknown]
  - Paraesthesia oral [Not Recovered/Not Resolved]
  - Skin warm [Unknown]
  - Paraesthesia [Recovered/Resolved]
